FAERS Safety Report 9937386 (Version 1)
Quarter: 2014Q1

REPORT INFORMATION
  Report Type: Report from Study
  Country: FR (occurrence: FR)
  Receive Date: 20140303
  Receipt Date: 20140303
  Transmission Date: 20141002
  Serious: Yes (Hospitalization, Other)
  Sender: FDA-Public Use
  Company Number: FR-ROCHE-1356431

PATIENT
  Age: 54 Year
  Sex: Male
  Weight: 58 kg

DRUGS (10)
  1. RIBAVIRIN [Suspect]
     Indication: HEPATITIS C
     Route: 048
     Dates: start: 20130730, end: 20130925
  2. RIBAVIRIN [Suspect]
     Route: 048
     Dates: start: 20130524, end: 20130614
  3. SOFOSBUVIR [Suspect]
     Indication: HEPATITIS C
     Route: 048
     Dates: start: 20130730, end: 20130925
  4. SOFOSBUVIR [Suspect]
     Route: 048
     Dates: start: 20130524, end: 20130614
  5. METRONIDAZOLE [Suspect]
     Indication: TOOTH ABSCESS
     Route: 065
     Dates: start: 20130917, end: 20130919
  6. SPIRAMYCIN [Suspect]
     Indication: TOOTH ABSCESS
     Route: 065
     Dates: start: 20130917, end: 20130919
  7. NEORAL [Concomitant]
  8. AMLOR [Concomitant]
     Route: 065
     Dates: start: 20130912, end: 20130925
  9. ESOMEPRAZOLE [Concomitant]
     Route: 065
     Dates: start: 20130417, end: 20130925
  10. TARDYFERON (FRANCE) [Concomitant]
     Route: 065
     Dates: start: 20130813, end: 20130925

REACTIONS (1)
  - Bone marrow failure [Recovered/Resolved]
